FAERS Safety Report 18156533 (Version 2)
Quarter: 2022Q1

REPORT INFORMATION
  Report Type: Spontaneous
  Country: US (occurrence: US)
  Receive Date: 20200817
  Receipt Date: 20220301
  Transmission Date: 20220423
  Serious: No
  Sender: FDA-Public Use
  Company Number: US-PFIZER INC-2020317135

PATIENT
  Age: 77 Year
  Sex: Female

DRUGS (1)
  1. PREGABALIN [Suspect]
     Active Substance: PREGABALIN

REACTIONS (4)
  - Drug ineffective [Unknown]
  - Pain [Unknown]
  - Memory impairment [Unknown]
  - Illness [Unknown]
